FAERS Safety Report 22066536 (Version 1)
Quarter: 2023Q1

REPORT INFORMATION
  Report Type: Spontaneous
  Country: US (occurrence: US)
  Receive Date: 20230306
  Receipt Date: 20230306
  Transmission Date: 20230417
  Serious: No
  Sender: FDA-Public Use
  Company Number: US-009507513-2302USA008823

PATIENT
  Age: 76 Year
  Sex: Male

DRUGS (1)
  1. MOLNUPIRAVIR [Suspect]
     Active Substance: MOLNUPIRAVIR
     Dosage: 800 MILLIGRAM, Q12H, FOR 5 DAYS
     Route: 048

REACTIONS (3)
  - Product prescribing issue [Unknown]
  - Product dispensing issue [Unknown]
  - No adverse event [Unknown]
